FAERS Safety Report 23527590 (Version 2)
Quarter: 2024Q1

REPORT INFORMATION
  Report Type: Spontaneous
  Country: FR (occurrence: None)
  Receive Date: 20240215
  Receipt Date: 20240306
  Transmission Date: 20240410
  Serious: Yes (Other)
  Sender: FDA-Public Use
  Company Number: 2024A038633

PATIENT
  Age: 27126 Day
  Sex: Male

DRUGS (4)
  1. FASENRA [Suspect]
     Active Substance: BENRALIZUMAB
     Dosage: ONCE EVERY 4 WEEKS THEN ONCE EVERY 8 WEEKS30.0MG UNKNOWN
     Route: 058
     Dates: start: 20230525
  2. FASENRA [Suspect]
     Active Substance: BENRALIZUMAB
     Dosage: UNKNOWN
     Route: 058
     Dates: start: 20231011
  3. FASENRA [Suspect]
     Active Substance: BENRALIZUMAB
     Dosage: UNKNOWN
     Route: 058
     Dates: start: 20231113
  4. FASENRA [Suspect]
     Active Substance: BENRALIZUMAB
     Dosage: UNKNOWN
     Route: 058
     Dates: start: 20240115

REACTIONS (10)
  - Dyspnoea [Unknown]
  - Malaise [Unknown]
  - COVID-19 [Unknown]
  - Eosinophil count decreased [Unknown]
  - Pyrexia [Unknown]
  - Chills [Unknown]
  - Urticaria [Unknown]
  - Pruritus [Unknown]
  - Rash [Unknown]
  - Off label use [Unknown]

NARRATIVE: CASE EVENT DATE: 20230525
